FAERS Safety Report 6573737-6 (Version None)
Quarter: 2010Q1

REPORT INFORMATION
  Report Type: 
  Country: None (occurrence: None)
  Receive Date: 20100208
  Receipt Date: 20100201
  Transmission Date: 20100710
  Serious: Yes (Other)
  Sender: FDA-Public Use
  Company Number: B0609708A

PATIENT
  Sex: Female

DRUGS (4)
  1. PAXIL [Suspect]
     Indication: DEPRESSION
     Dosage: 10MG PER DAY
     Route: 048
     Dates: start: 20091013
  2. RHYTHMY [Concomitant]
     Dosage: 2MG PER DAY
     Route: 048
  3. SOLANAX [Concomitant]
     Indication: ANXIETY
     Dosage: .4MG THREE TIMES PER DAY
     Route: 048
  4. AMARYL [Concomitant]
     Indication: DIABETES MELLITUS
     Dosage: 1MG THREE TIMES PER DAY
     Route: 048

REACTIONS (2)
  - EYE PAIN [None]
  - VISUAL ACUITY REDUCED [None]
